FAERS Safety Report 7285720-6 (Version None)
Quarter: 2011Q1

REPORT INFORMATION
  Report Type: 
  Country: None (occurrence: None)
  Receive Date: 20110210
  Receipt Date: 20110207
  Transmission Date: 20110831
  Serious: Yes (Life-Threatening, Hospitalization)
  Sender: FDA-Public Use
  Company Number: D0069471A

PATIENT
  Age: 50 Year
  Sex: Female

DRUGS (2)
  1. HYCAMTIN [Suspect]
     Indication: OVARIAN CANCER
     Route: 065
     Dates: start: 20080811
  2. CISPLATIN [Suspect]
     Route: 065

REACTIONS (3)
  - DYSPNOEA [None]
  - ANAPHYLACTIC REACTION [None]
  - RASH [None]
